FAERS Safety Report 16864435 (Version 1)
Quarter: 2019Q3

REPORT INFORMATION
  Report Type: Spontaneous
  Country: VN (occurrence: VN)
  Receive Date: 20190928
  Receipt Date: 20190928
  Transmission Date: 20191005
  Serious: Yes (Other)
  Sender: FDA-Public Use
  Company Number: VN-ABBVIE-19K-179-2939933-00

PATIENT
  Sex: Female
  Weight: 62 kg

DRUGS (2)
  1. CHIROCAINE [Suspect]
     Active Substance: LEVOBUPIVACAINE HYDROCHLORIDE
     Indication: SPINAL ANAESTHESIA
     Route: 050
     Dates: start: 20190913, end: 20190913
  2. FENILHAM [Concomitant]
     Indication: PAIN
     Route: 050
     Dates: start: 20190913, end: 20190913

REACTIONS (5)
  - Caesarean section [Unknown]
  - Heart rate increased [Unknown]
  - Exposure during pregnancy [Unknown]
  - Live birth [Unknown]
  - Coma [Recovered/Resolved]

NARRATIVE: CASE EVENT DATE: 201909
